FAERS Safety Report 21179084 (Version 1)
Quarter: 2022Q3

REPORT INFORMATION
  Report Type: Spontaneous
  Country: US (occurrence: None)
  Receive Date: 20220805
  Receipt Date: 20220805
  Transmission Date: 20221027
  Serious: Yes (Death)
  Sender: FDA-Public Use
  Company Number: None

PATIENT
  Age: 65 Year
  Sex: Female
  Weight: 52.5 kg

DRUGS (14)
  1. WARFARIN [Suspect]
     Active Substance: WARFARIN
     Indication: Peripheral arterial occlusive disease
     Dosage: OTHER FREQUENCY : TUE, FRI, SAT, SUN;?
     Route: 048
     Dates: start: 20171023, end: 20220729
  2. WARFARIN [Suspect]
     Active Substance: WARFARIN
     Indication: Peripheral arterial occlusive disease
     Dosage: OTHER FREQUENCY : MON, WED, THURS;?
     Route: 048
     Dates: start: 20171023, end: 20220729
  3. AMLODIPINE [Concomitant]
     Active Substance: AMLODIPINE BESYLATE
     Dates: start: 20220726
  4. Amoxicillin-Clavulanate 875-125mg [Concomitant]
     Dates: start: 20220725
  5. Enoxaparin 60mg/0.6mL [Concomitant]
     Dates: start: 20220725
  6. MAGNESIUM OXIDE 400MG [Concomitant]
     Active Substance: MAGNESIUM OXIDE
     Dates: start: 20220707
  7. ASPIRIN [Concomitant]
     Active Substance: ASPIRIN
     Dates: start: 20220707
  8. ACETAMINOPHEN\HYDROCODONE BITARTRATE [Concomitant]
     Active Substance: ACETAMINOPHEN\HYDROCODONE BITARTRATE
     Dates: start: 20220705
  9. Iron polysaccharides 150mg [Concomitant]
     Dates: start: 20220630
  10. TRAZODONE [Concomitant]
     Active Substance: TRAZODONE HYDROCHLORIDE
     Dates: start: 20220630
  11. METOPROLOL TARTRATE [Concomitant]
     Active Substance: METOPROLOL TARTRATE
     Dates: start: 20211021
  12. MIRTAZAPINE [Concomitant]
     Active Substance: MIRTAZAPINE
     Dates: start: 20211021
  13. ATORVASTATIN [Concomitant]
     Active Substance: ATORVASTATIN
     Dates: start: 20220217
  14. BUSPIRONE HYDROCHLORIDE [Concomitant]
     Active Substance: BUSPIRONE HYDROCHLORIDE
     Dates: start: 20220414

REACTIONS (4)
  - Gastrointestinal haemorrhage [None]
  - Anticoagulation drug level above therapeutic [None]
  - Anticoagulation drug level below therapeutic [None]
  - Cerebral haemorrhage [None]

NARRATIVE: CASE EVENT DATE: 20220727
